FAERS Safety Report 14178973 (Version 4)
Quarter: 2018Q3

REPORT INFORMATION
  Report Type: Report from Study
  Country: US (occurrence: US)
  Receive Date: 20171110
  Receipt Date: 20180713
  Transmission Date: 20181010
  Serious: Yes (Other)
  Sender: FDA-Public Use
  Company Number: US-SA-2015SA166659

PATIENT
  Age: 63 Year
  Sex: Female

DRUGS (2)
  1. LUMIZYME [Suspect]
     Active Substance: ALGLUCOSIDASE ALFA
     Indication: GLYCOGEN STORAGE DISEASE TYPE II
     Dosage: DOSE?1900, 1950 FREQUENCY?Q2
     Route: 041
     Dates: start: 20110616
  2. LUMIZYME [Suspect]
     Active Substance: ALGLUCOSIDASE ALFA
     Dosage: DOSE: 1950 FREQUENCY: Q2
     Route: 041
     Dates: start: 20160802

REACTIONS (18)
  - Pain [Recovered/Resolved]
  - Diverticulum [Not Recovered/Not Resolved]
  - Dyspnoea [Recovered/Resolved]
  - Large intestinal haemorrhage [Not Recovered/Not Resolved]
  - Gastrointestinal disorder [Recovering/Resolving]
  - Pulmonary function test decreased [Unknown]
  - Disease progression [Unknown]
  - Pain [Not Recovered/Not Resolved]
  - Muscle spasms [Not Recovered/Not Resolved]
  - Aortic aneurysm [Unknown]
  - Arthralgia [Recovered/Resolved]
  - Myalgia [Recovered/Resolved]
  - Infusion related reaction [Recovered/Resolved]
  - Hip arthroplasty [Recovering/Resolving]
  - Constipation [Not Recovered/Not Resolved]
  - Haemorrhoids [Not Recovered/Not Resolved]
  - Diarrhoea [Not Recovered/Not Resolved]
  - Colitis [Not Recovered/Not Resolved]

NARRATIVE: CASE EVENT DATE: 201207
